FAERS Safety Report 4337513-7 (Version None)
Quarter: 2004Q2

REPORT INFORMATION
  Report Type: 
  Country: None (occurrence: None)
  Receive Date: 20040413
  Receipt Date: 20040126
  Transmission Date: 20050107
  Serious: Yes (Hospitalization)
  Sender: FDA-Public Use
  Company Number: US-GLAXOSMITHKLINE-A0497165A

PATIENT
  Age: 64 Year
  Sex: Female

DRUGS (5)
  1. AVANDIA [Suspect]
     Indication: DIABETES MELLITUS
     Route: 048
     Dates: start: 20001004, end: 20021022
  2. ELAVIL [Concomitant]
     Route: 048
  3. PRILOSEC [Concomitant]
     Route: 048
  4. PREMARIN [Concomitant]
     Route: 048
  5. HYDROCHLOROTHIAZIDE [Concomitant]
     Route: 048

REACTIONS (10)
  - ANAEMIA [None]
  - CARDIAC FAILURE CONGESTIVE [None]
  - CELLULITIS [None]
  - COLITIS ISCHAEMIC [None]
  - HEPATIC CIRRHOSIS [None]
  - HEPATIC ENCEPHALOPATHY [None]
  - PLATELET COUNT DECREASED [None]
  - RECTAL HAEMORRHAGE [None]
  - URINARY TRACT INFECTION [None]
  - WEIGHT INCREASED [None]
